FAERS Safety Report 6297169-3 (Version None)
Quarter: 2009Q3

REPORT INFORMATION
  Report Type: 
  Country: None (occurrence: None)
  Receive Date: 20090805
  Receipt Date: 20070706
  Transmission Date: 20100115
  Serious: Yes (Other)
  Sender: FDA-Public Use
  Company Number: US-ASTRAZENECA-2006UW25447

PATIENT
  Age: 43 Year
  Sex: Male
  Weight: 117.9 kg

DRUGS (4)
  1. SEROQUEL [Suspect]
     Indication: DEPRESSION
     Dosage: 25-50 MG
     Route: 048
     Dates: start: 20050622
  2. SEROQUEL [Suspect]
     Route: 048
     Dates: start: 20050101, end: 20060401
  3. LEXAPRO [Concomitant]
  4. MOBIC [Concomitant]
     Route: 048
     Dates: start: 20041110

REACTIONS (3)
  - BLINDNESS [None]
  - RENAL DISORDER [None]
  - TYPE 2 DIABETES MELLITUS [None]
